FAERS Safety Report 8010855-X (Version None)
Quarter: 2011Q4

REPORT INFORMATION
  Report Type: 
  Country: None (occurrence: None)
  Receive Date: 20111228
  Receipt Date: 20111215
  Transmission Date: 20120403
  Serious: Yes (Hospitalization)
  Sender: FDA-Public Use
  Company Number: ES-UCBSA-047778

PATIENT
  Age: 55 Year
  Sex: Male

DRUGS (6)
  1. ASPIRIN [Concomitant]
     Dosage: DAILY DOSE 300 MG
     Route: 048
  2. NITROGLYCERIN [Suspect]
     Dosage: DAILY DOSE 10 MG
     Route: 062
     Dates: start: 20100401
  3. FUROSEMIDE [Suspect]
     Dosage: DAILY DOSE 40 MG
     Route: 048
     Dates: start: 20090101, end: 20100607
  4. GEMCITABINE HYDROCHLORIDE [Suspect]
     Dosage: DAILY DOSE 160 MG
     Route: 030
     Dates: start: 20100526, end: 20100531
  5. BISOPROLOL [Suspect]
     Dosage: DAILY DOSE 5 MG
     Route: 048
     Dates: start: 20090101, end: 20100603
  6. ENALAPRIL MALEATE [Suspect]
     Dosage: DAILY DOSE 5 MG
     Route: 048
     Dates: start: 20100520, end: 20100603

REACTIONS (3)
  - CARDIAC FAILURE [None]
  - PULMONARY OEDEMA [None]
  - RENAL FAILURE CHRONIC [None]
